FAERS Safety Report 15734616 (Version 4)
Quarter: 2019Q1

REPORT INFORMATION
  Report Type: Spontaneous
  Country: JP (occurrence: JP)
  Receive Date: 20181218
  Receipt Date: 20190215
  Transmission Date: 20190417
  Serious: Yes (Death, Life-Threatening, Hospitalization, Other)
  Sender: FDA-Public Use
  Company Number: JP-ELI_LILLY_AND_COMPANY-JP201812007456

PATIENT
  Age: 77 Year
  Sex: Male
  Weight: 48 kg

DRUGS (13)
  1. QUETIAPINE. [Concomitant]
     Active Substance: QUETIAPINE
     Indication: INSOMNIA
     Dosage: 50 MG, DAILY
     Route: 048
     Dates: start: 20180425, end: 20181121
  2. ERBITUX [Suspect]
     Active Substance: CETUXIMAB
     Indication: LARYNGEAL CANCER
     Dosage: 400 MG/M2, 580MG
     Route: 041
     Dates: start: 20180821, end: 20180821
  3. AMBROXOL [Concomitant]
     Active Substance: AMBROXOL
     Indication: PRODUCTIVE COUGH
     Dosage: 15 MG, BID
     Route: 048
     Dates: start: 20180225, end: 20181121
  4. 5 FU [Concomitant]
     Active Substance: FLUOROURACIL
     Indication: LARYNGEAL CANCER
     Dosage: UNK, UNKNOWN
     Route: 065
     Dates: start: 2018, end: 2018
  5. BELSOMRA [Concomitant]
     Active Substance: SUVOREXANT
     Indication: INSOMNIA
     Dosage: 15 MG, DAILY
     Route: 048
     Dates: start: 20180502, end: 20181121
  6. DOCETAXEL. [Concomitant]
     Active Substance: DOCETAXEL
     Indication: LARYNGEAL CANCER
     Dosage: UNK, UNKNOWN
     Route: 065
     Dates: start: 2018, end: 2018
  7. DEXART [Concomitant]
     Active Substance: DEXAMETHASONE SODIUM PHOSPHATE
     Indication: PRODUCT USED FOR UNKNOWN INDICATION
     Dosage: 6.6 MG, WEEKLY (1/W)
     Route: 041
     Dates: start: 20180821, end: 20181009
  8. MINOCYCLINE [MINOCYCLINE HYDROCHLORIDE] [Concomitant]
     Indication: PROPHYLAXIS
     Dosage: 100 MG, BID
     Route: 048
     Dates: start: 20180820, end: 20181023
  9. ERBITUX [Suspect]
     Active Substance: CETUXIMAB
     Dosage: 250 MG/M2, WEEKLY (1/W), 360 MG
     Route: 041
     Dates: start: 2018, end: 20181009
  10. POLARAMINE [Concomitant]
     Active Substance: DEXCHLORPHENIRAMINE MALEATE
     Indication: PRODUCT USED FOR UNKNOWN INDICATION
     Dosage: 5 MG, WEEKLY (1/W)
     Route: 041
     Dates: start: 20180821, end: 20181009
  11. THYRADIN-S [Concomitant]
     Active Substance: LEVOTHYROXINE
     Indication: PRODUCT USED FOR UNKNOWN INDICATION
     Dosage: 100 UG, DAILY
     Route: 048
     Dates: start: 20180416, end: 20181214
  12. FEXOFENADINE [Concomitant]
     Active Substance: FEXOFENADINE\FEXOFENADINE HYDROCHLORIDE
     Indication: PRURITUS
     Dosage: 60 MG, BID
     Route: 048
     Dates: start: 20180820, end: 20181121
  13. ALFAROL [Concomitant]
     Active Substance: ALFACALCIDOL
     Indication: PRODUCT USED FOR UNKNOWN INDICATION
     Dosage: 1 UG, DAILY
     Route: 048
     Dates: start: 20180418, end: 20181214

REACTIONS (11)
  - Disseminated intravascular coagulation [Fatal]
  - Obstructive airways disorder [Fatal]
  - Hyperkalaemia [Recovered/Resolved]
  - Off label use [Unknown]
  - Interstitial lung disease [Fatal]
  - Cardiac arrest [Fatal]
  - Radiation pneumonitis [Fatal]
  - Pneumocystis jirovecii pneumonia [Fatal]
  - Anaemia [Not Recovered/Not Resolved]
  - Platelet count decreased [Unknown]
  - Sputum retention [Not Recovered/Not Resolved]

NARRATIVE: CASE EVENT DATE: 20181112
